FAERS Safety Report 7967946-9 (Version None)
Quarter: 2011Q4

REPORT INFORMATION
  Report Type: 
  Country: None (occurrence: None)
  Receive Date: 20111209
  Receipt Date: 20111018
  Transmission Date: 20120403
  Serious: Yes (Hospitalization)
  Sender: FDA-Public Use
  Company Number: US-ROCHE-1020234

PATIENT
  Sex: Male

DRUGS (4)
  1. AVASTIN [Suspect]
     Indication: GLIOBLASTOMA
     Route: 042
     Dates: start: 20110105, end: 20110907
  2. TARCEVA [Suspect]
     Indication: GLIOBLASTOMA
     Dosage: DAILY
     Route: 048
     Dates: start: 20110405, end: 20110920
  3. PROSCAR [Concomitant]
     Dates: start: 20110727
  4. VITAMIN B COMPLEX CAP [Concomitant]

REACTIONS (1)
  - GRAND MAL CONVULSION [None]
